FAERS Safety Report 7028640-4 (Version None)
Quarter: 2010Q4

REPORT INFORMATION
  Report Type: 
  Country: None (occurrence: None)
  Receive Date: 20101005
  Receipt Date: 20100922
  Transmission Date: 20110411
  Serious: Yes (Hospitalization, Other)
  Sender: FDA-Public Use
  Company Number: US-ELI_LILLY_AND_COMPANY-US201009006211

PATIENT
  Age: 40 Year
  Sex: Female
  Weight: 91.156 kg

DRUGS (13)
  1. CYMBALTA [Suspect]
     Indication: HYPERSOMNIA
     Dosage: UNK, UNKNOWN
     Dates: end: 20100708
  2. GEODON [Concomitant]
     Indication: BIPOLAR DISORDER
     Dosage: UNK, UNKNOWN
     Route: 048
     Dates: start: 20100708, end: 20100708
  3. GEODON [Concomitant]
     Dosage: 160 MG, EACH EVENING
     Route: 048
     Dates: start: 20100709
  4. RITALIN [Concomitant]
     Indication: ATTENTION DEFICIT/HYPERACTIVITY DISORDER
     Dosage: UNK, UNKNOWN
     Route: 048
     Dates: start: 20000101, end: 20100708
  5. RITALIN [Concomitant]
     Dosage: 20 MG, 2/D
     Route: 048
     Dates: start: 20100701
  6. RITALIN [Concomitant]
     Dosage: 20 MG, EACH MORNING
     Route: 048
     Dates: start: 20100701
  7. LIPITOR [Concomitant]
     Indication: BLOOD CHOLESTEROL INCREASED
     Dosage: 20 MG, DAILY (1/D)
  8. SEROQUEL [Concomitant]
     Dosage: 150 MG, DAILY (1/D)
  9. ATENOLOL [Concomitant]
     Indication: HYPERTENSION
     Dosage: 25 MG, DAILY (1/D)
  10. ESTRACE [Concomitant]
     Dosage: 2 MG, EACH MORNING
  11. NORTRIPTYLINE HCL [Concomitant]
     Indication: HEADACHE
     Dosage: 50 MG, DAILY (1/D)
  12. DEXLANSOPRAZOLE [Concomitant]
     Dosage: 60 MG, DAILY (1/D)
  13. LIBRIUM [Concomitant]
     Indication: HEADACHE

REACTIONS (12)
  - BIPOLAR DISORDER [None]
  - CONVULSION [None]
  - DEPRESSION [None]
  - DIABETES MELLITUS [None]
  - FLUID RETENTION [None]
  - GAIT DISTURBANCE [None]
  - MANIA [None]
  - OEDEMA PERIPHERAL [None]
  - OFF LABEL USE [None]
  - PHARYNGEAL OEDEMA [None]
  - PSYCHOTIC DISORDER [None]
  - SWOLLEN TONGUE [None]
